FAERS Safety Report 4876591-3 (Version None)
Quarter: 2006Q1

REPORT INFORMATION
  Report Type: 
  Country: None (occurrence: None)
  Receive Date: 20060110
  Receipt Date: 20060106
  Transmission Date: 20060701
  Serious: Yes (Life-Threatening, Hospitalization)
  Sender: FDA-Public Use
  Company Number: US-GLAXOSMITHKLINE-A0588094A

PATIENT
  Age: 49 Year
  Sex: Female

DRUGS (6)
  1. GOODY'S EXTRA STRENGTH HEADACHE POWDER [Suspect]
     Indication: ARTHRITIS
     Route: 048
     Dates: end: 20051224
  2. LORTAB [Concomitant]
  3. ZOCOR [Concomitant]
  4. ATIVAN [Concomitant]
  5. PREMARIN [Concomitant]
  6. ANTI-HYPERTENSIVE [Concomitant]

REACTIONS (8)
  - ABASIA [None]
  - BLOOD PRESSURE IMMEASURABLE [None]
  - CONSTIPATION [None]
  - DEPENDENCE [None]
  - FAECALOMA [None]
  - INTENTIONAL DRUG MISUSE [None]
  - PERFORATED ULCER [None]
  - PULSE ABSENT [None]
